FAERS Safety Report 12680183 (Version 2)
Quarter: 2016Q3

REPORT INFORMATION
  Report Type: Report from Study
  Country: US (occurrence: US)
  Receive Date: 20160824
  Receipt Date: 20160916
  Transmission Date: 20161109
  Serious: Yes (Other)
  Sender: FDA-Public Use
  Company Number: US-ABBVIE-16K-163-1701746-00

PATIENT
  Age: 65 Year
  Sex: Male

DRUGS (1)
  1. HUMIRA [Suspect]
     Active Substance: ADALIMUMAB
     Indication: CROHN^S DISEASE
     Route: 058

REACTIONS (3)
  - Atrial fibrillation [Unknown]
  - Collateral circulation [Unknown]
  - Coronary artery occlusion [Unknown]

NARRATIVE: CASE EVENT DATE: 20160801
